FAERS Safety Report 18219726 (Version 1)
Quarter: 2020Q3

REPORT INFORMATION
  Report Type: Spontaneous
  Country: US (occurrence: US)
  Receive Date: 20200901
  Receipt Date: 20200901
  Transmission Date: 20201103
  Serious: Yes (Disabling, Other)
  Sender: FDA-Public Use
  Company Number: US-PURDUE-USA-2020-0163743

PATIENT
  Sex: Female

DRUGS (6)
  1. OXYCONTIN [Suspect]
     Active Substance: OXYCODONE HYDROCHLORIDE
     Indication: PAIN
     Dosage: 40 MG, 3 OR 4 TIMES A DAY
     Route: 048
     Dates: start: 199907
  2. OXYCODONE HCL TABLETS (RHODES 91?490) [Suspect]
     Active Substance: OXYCODONE HYDROCHLORIDE
     Indication: PRODUCT USED FOR UNKNOWN INDICATION
     Dosage: UNK
     Route: 048
  3. OXYCODONE HCL CR TABLETS (SIMILAR TO NDA 22?272) [Suspect]
     Active Substance: OXYCODONE HYDROCHLORIDE
     Indication: PRODUCT USED FOR UNKNOWN INDICATION
     Route: 048
  4. PERCOCET                           /00446701/ [Suspect]
     Active Substance: ACETAMINOPHEN\OXYCODONE HYDROCHLORIDE\OXYCODONE TEREPHTHALATE
     Indication: BREAKTHROUGH PAIN
     Route: 048
  5. OXYCODONE/ ACETAMINOPHEN TABLETS [Suspect]
     Active Substance: ACETAMINOPHEN\OXYCODONE HYDROCHLORIDE
     Indication: PRODUCT USED FOR UNKNOWN INDICATION
     Dosage: UNK
     Route: 048
  6. OXYIR [Suspect]
     Active Substance: OXYCODONE HYDROCHLORIDE
     Indication: PRODUCT USED FOR UNKNOWN INDICATION
     Route: 065

REACTIONS (23)
  - Drug dependence [Unknown]
  - Suicidal ideation [Unknown]
  - Hyperaesthesia [Unknown]
  - Asthma [Unknown]
  - Personality disorder [Unknown]
  - Emotional distress [Unknown]
  - Drug ineffective [Unknown]
  - Sleep apnoea syndrome [Unknown]
  - Nervous system disorder [Unknown]
  - Sleep terror [Unknown]
  - Insomnia [Unknown]
  - Respiratory depression [Unknown]
  - Judgement impaired [Unknown]
  - Decreased interest [Unknown]
  - Disease progression [Unknown]
  - Product dispensing error [Unknown]
  - Disability [Unknown]
  - Constipation [Unknown]
  - Anxiety [Unknown]
  - Unevaluable event [Unknown]
  - Affective disorder [Unknown]
  - Withdrawal syndrome [Unknown]
  - Norepinephrine decreased [Unknown]

NARRATIVE: CASE EVENT DATE: 200001
